FAERS Safety Report 24777365 (Version 1)
Quarter: 2024Q4

REPORT INFORMATION
  Report Type: Spontaneous
  Country: US (occurrence: None)
  Receive Date: 20241224
  Receipt Date: 20241224
  Transmission Date: 20250115
  Serious: Yes (Disabling)
  Sender: Public
  Company Number: None

PATIENT
  Age: 28 Year
  Sex: Male
  Weight: 76.5 kg

DRUGS (1)
  1. CIPROFLOXACIN HYDROCHLORIDE [Suspect]
     Active Substance: CIPROFLOXACIN HYDROCHLORIDE
     Indication: Prostatitis
     Dates: start: 20241219, end: 20241221

REACTIONS (5)
  - Insomnia [None]
  - Neuropathy peripheral [None]
  - Nervous system disorder [None]
  - Hyperacusis [None]
  - Tinnitus [None]

NARRATIVE: CASE EVENT DATE: 20241220
